FAERS Safety Report 16463493 (Version 2)
Quarter: 2019Q4

REPORT INFORMATION
  Report Type: Spontaneous
  Country: US (occurrence: US)
  Receive Date: 20190621
  Receipt Date: 20191012
  Transmission Date: 20200122
  Serious: Yes (Other)
  Sender: FDA-Public Use
  Company Number: US-009507513-1906USA005010

PATIENT
  Age: 26 Year
  Sex: Male

DRUGS (1)
  1. INTEGRILIN [Suspect]
     Active Substance: EPTIFIBATIDE
     Indication: INTRACARDIAC THROMBUS
     Dosage: UNK
     Route: 042

REACTIONS (1)
  - Coronary artery dissection [Recovered/Resolved]
